FAERS Safety Report 5817330-9 (Version None)
Quarter: 2008Q3

REPORT INFORMATION
  Report Type: 
  Country: None (occurrence: None)
  Receive Date: 20080715
  Receipt Date: 20080701
  Transmission Date: 20090109
  Serious: Yes (Other)
  Sender: FDA-Public Use
  Company Number: CERZ-1000276

PATIENT
  Age: 37 Year
  Sex: Female
  Weight: 62 kg

DRUGS (6)
  1. CEREZYME [Suspect]
     Indication: GAUCHER'S DISEASE
     Dosage: 3000 U, Q2W; INTRAVENOUS
     Route: 042
     Dates: start: 20020926
  2. ACETAMINOPHEN [Concomitant]
  3. CALCIUM CARBONATE (CALCIUM CARBONATE) [Concomitant]
  4. ZOLEDRONIC ACID [Concomitant]
  5. FOLIC ACID [Concomitant]
  6. FERROUS SULFATE (FERROUS SULFATE) TABLET [Concomitant]

REACTIONS (5)
  - CAESAREAN SECTION [None]
  - DRUG EXPOSURE DURING PREGNANCY [None]
  - OLIGOHYDRAMNIOS [None]
  - PREGNANCY [None]
  - PREMATURE LABOUR [None]
